FAERS Safety Report 9338007 (Version 1)
Quarter: 2013Q2

REPORT INFORMATION
  Report Type: Spontaneous
  Country: US (occurrence: US)
  Receive Date: 20130610
  Receipt Date: 20130610
  Transmission Date: 20140414
  Serious: Yes (Death, Hospitalization)
  Sender: FDA-Public Use
  Company Number: US-MYLANLABS-2013S1011889

PATIENT
  Age: 29 Year
  Sex: Male
  Weight: 101.6 kg

DRUGS (6)
  1. ADDERALL [Suspect]
     Indication: ATTENTION DEFICIT/HYPERACTIVITY DISORDER
     Dosage: 30MG IN THE MORNING AND 25MG IN THE EVENING
     Route: 065
     Dates: start: 200906
  2. SUMATRIPTAN [Suspect]
     Indication: MIGRAINE
     Dosage: REQUIRING ONE EVERY 2 WEEKS
     Route: 048
     Dates: start: 200906, end: 201002
  3. METHYLPHENIDATE [Suspect]
     Indication: ATTENTION DEFICIT/HYPERACTIVITY DISORDER
     Route: 065
     Dates: start: 2000
  4. METHYLPHENIDATE [Suspect]
     Indication: ATTENTION DEFICIT/HYPERACTIVITY DISORDER
     Route: 065
     Dates: start: 2000
  5. ATOMOXETINE [Concomitant]
     Indication: ATTENTION DEFICIT/HYPERACTIVITY DISORDER
     Route: 065
  6. PROPRANOLOL [Concomitant]
     Indication: MIGRAINE
     Route: 065

REACTIONS (2)
  - Coronary artery occlusion [Fatal]
  - Myalgia [Unknown]
